FAERS Safety Report 4989805-6 (Version None)
Quarter: 2006Q2

REPORT INFORMATION
  Report Type: 
  Country: None (occurrence: None)
  Receive Date: 20060428
  Receipt Date: 20060420
  Transmission Date: 20061013
  Serious: Yes (Hospitalization)
  Sender: FDA-Public Use
  Company Number: 2006054541

PATIENT
  Age: 86 Year
  Sex: Female

DRUGS (4)
  1. PHENYTOIN [Suspect]
     Indication: EPILEPSY
     Dosage: (1 IN 1 D), ORAL
     Route: 048
     Dates: start: 20051014, end: 20051116
  2. LOSEC (OMEPRAZOLE) [Concomitant]
  3. SANGOBION (ASCORBIC ACID, COPPER SULFATE, CYANOCOBALAMIN, FERROUS GLUC [Concomitant]
  4. CIPROFLOXACIN [Concomitant]

REACTIONS (2)
  - RASH MACULO-PAPULAR [None]
  - RASH PRURITIC [None]
